FAERS Safety Report 26174795 (Version 1)
Quarter: 2025Q4

REPORT INFORMATION
  Report Type: Report from Study
  Country: US (occurrence: US)
  Receive Date: 20251218
  Receipt Date: 20251218
  Transmission Date: 20260118
  Serious: Yes (Other)
  Sender: TRAVERE THERAPEUTICS
  Company Number: US-TRAVERE-2025TVT02448

PATIENT
  Age: 72 Year
  Sex: Male
  Weight: 131.54 kg

DRUGS (14)
  1. FILSPARI [Suspect]
     Active Substance: SPARSENTAN
     Indication: IgA nephropathy
     Route: 048
     Dates: start: 202504
  2. METOPROLOL [Concomitant]
     Active Substance: METOPROLOL
  3. EPLERENONE [Concomitant]
     Active Substance: EPLERENONE
  4. ATORVASTATIN [Concomitant]
     Active Substance: ATORVASTATIN
  5. TORSEMIDE [Concomitant]
     Active Substance: TORSEMIDE
  6. HYDRALAZINE [Concomitant]
     Active Substance: HYDRALAZINE HYDROCHLORIDE
  7. VELTASSA [Concomitant]
     Active Substance: PATIROMER
  8. Renacarb [Concomitant]
  9. VITAMIN D3 [Concomitant]
     Active Substance: CHOLECALCIFEROL
  10. FISH OIL [Concomitant]
     Active Substance: FISH OIL
  11. ASPIRIN [Concomitant]
     Active Substance: ASPIRIN
  12. MINERALS\VITAMINS [Concomitant]
     Active Substance: MINERALS\VITAMINS
  13. MAGNESIUM [Concomitant]
     Active Substance: MAGNESIUM
  14. FEBUXOSTAT [Concomitant]
     Active Substance: FEBUXOSTAT

REACTIONS (1)
  - Prostate cancer [None]

NARRATIVE: CASE EVENT DATE: 20251001
